FAERS Safety Report 5542368-9 (Version None)
Quarter: 2007Q4

REPORT INFORMATION
  Report Type: 
  Country: None (occurrence: None)
  Receive Date: 20071210
  Receipt Date: 20070103
  Transmission Date: 20080405
  Serious: No
  Sender: FDA-Public Use
  Company Number: US-AMGEN-KDL200886

PATIENT
  Sex: Female
  Weight: 98.5 kg

DRUGS (14)
  1. ENBREL [Suspect]
     Indication: RHEUMATOID ARTHRITIS
     Route: 058
     Dates: start: 20061025
  2. ACEBUTOLOL [Concomitant]
  3. ZOCOR [Concomitant]
  4. COZAAR [Concomitant]
  5. ZYRTEC [Concomitant]
  6. EVISTA [Concomitant]
  7. PRILOSEC [Concomitant]
  8. LUNESTA [Concomitant]
  9. MECLIZINE [Concomitant]
  10. ELMIRON [Concomitant]
  11. FLOVENT [Concomitant]
  12. ALBUTEROL [Concomitant]
  13. NASONEX [Concomitant]
  14. REMERON [Concomitant]

REACTIONS (2)
  - INJECTION SITE BRUISING [None]
  - INJECTION SITE REACTION [None]
